FAERS Safety Report 17308431 (Version 1)
Quarter: 2020Q1

REPORT INFORMATION
  Report Type: Spontaneous
  Country: US (occurrence: US)
  Receive Date: 20200123
  Receipt Date: 20200123
  Transmission Date: 20200409
  Serious: Yes (Other)
  Sender: FDA-Public Use
  Company Number: US-TEVA-2020-US-1171216

PATIENT
  Age: 53 Year
  Sex: Female

DRUGS (2)
  1. AZITHROMYCIN ANHYDROUS. [Suspect]
     Active Substance: AZITHROMYCIN ANHYDROUS
     Indication: PNEUMONIA
  2. AZITHROMYCIN ANHYDROUS. [Suspect]
     Active Substance: AZITHROMYCIN ANHYDROUS
     Indication: INFLUENZA
     Route: 065
     Dates: start: 20200114, end: 20200114

REACTIONS (3)
  - Haematochezia [Not Recovered/Not Resolved]
  - Coeliac disease [Unknown]
  - Vomiting [Unknown]

NARRATIVE: CASE EVENT DATE: 202001
